FAERS Safety Report 9478624 (Version 1)
Quarter: 2013Q3

REPORT INFORMATION
  Report Type: Spontaneous
  Country: US (occurrence: US)
  Receive Date: 20130827
  Receipt Date: 20130827
  Transmission Date: 20140515
  Serious: Yes (Hospitalization)
  Sender: FDA-Public Use
  Company Number: US-SHIRE-ALL1-2013-05755

PATIENT
  Age: 50 Year
  Sex: Male

DRUGS (6)
  1. VYVANSE [Suspect]
     Indication: PRODUCT USED FOR UNKNOWN INDICATION
     Dosage: 40 MG, UNKNOWN
     Route: 048
  2. VYVANSE [Suspect]
     Dosage: 20 MG, UNKNOWN
     Route: 048
  3. VYVANSE [Suspect]
     Dosage: 30 MG, UNKNOWN
     Route: 048
  4. VYVANSE [Suspect]
     Dosage: 40 MG, UNKNOWN
     Route: 048
  5. VYVANSE [Suspect]
     Dosage: 50 MG, UNKNOWN
     Route: 048
  6. OTHER CARDIAC PREPARATIONS [Suspect]
     Indication: BLOOD PRESSURE
     Dosage: UNK, UNKNOWN
     Route: 065

REACTIONS (1)
  - Cerebrovascular accident [Unknown]
